FAERS Safety Report 7408484-1 (Version None)
Quarter: 2011Q2

REPORT INFORMATION
  Report Type: 
  Country: None (occurrence: None)
  Receive Date: 20110401
  Receipt Date: 20110325
  Transmission Date: 20111010
  Serious: No
  Sender: FDA-Public Use
  Company Number: 2011-00133

PATIENT
  Age: 19 Year
  Sex: Female
  Weight: 83.9154 kg

DRUGS (1)
  1. ZICAM COLD REMEDY ZAVORS [Suspect]
     Dosage: 1 DOSE
     Dates: start: 20110325, end: 20110325

REACTIONS (1)
  - AGEUSIA [None]
